FAERS Safety Report 24458499 (Version 1)
Quarter: 2024Q4

REPORT INFORMATION
  Report Type: Report from Study
  Country: US (occurrence: US)
  Receive Date: 20241018
  Receipt Date: 20241018
  Transmission Date: 20250115
  Serious: No
  Sender: ROCHE
  Company Number: US-ROCHE-3518966

PATIENT
  Age: 49 Year
  Sex: Female

DRUGS (5)
  1. RITUXAN [Suspect]
     Active Substance: RITUXIMAB
     Indication: Granulomatosis with polyangiitis
     Dosage: DATE OF TREATMENT: 13/FEB/2024, 04/MAY/2017, 11/MAY/2017, 18/MAY/2017 AND 25/MAY/2017, DATE OF SERVI
     Route: 042
     Dates: start: 20240206
  2. RITUXAN [Suspect]
     Active Substance: RITUXIMAB
     Dosage: INFUSE 700MG IV EVERY 4 WEEKS
     Route: 042
  3. AUGMENTIN [Concomitant]
     Active Substance: AMOXICILLIN\CLAVULANATE POTASSIUM
  4. CEFTRIAXONE SODIUM [Concomitant]
     Active Substance: CEFTRIAXONE SODIUM
     Route: 065
  5. DEXAMETHASONE [Concomitant]
     Active Substance: DEXAMETHASONE

REACTIONS (2)
  - Off label use [Unknown]
  - No adverse event [Unknown]
